FAERS Safety Report 18039329 (Version 3)
Quarter: 2020Q3

REPORT INFORMATION
  Report Type: Report from Study
  Country: US (occurrence: US)
  Receive Date: 20200717
  Receipt Date: 20200929
  Transmission Date: 20201103
  Serious: Yes (Hospitalization, Other)
  Sender: FDA-Public Use
  Company Number: US-GILEAD-2020-0483196

PATIENT
  Age: 43 Year
  Sex: Female

DRUGS (31)
  1. BUDESONIDE. [Concomitant]
     Active Substance: BUDESONIDE
  2. CARNITOR [Concomitant]
     Active Substance: LEVOCARNITINE
  3. QUETIAPINE FUMARATE. [Concomitant]
     Active Substance: QUETIAPINE FUMARATE
  4. LOVENOX [Concomitant]
     Active Substance: ENOXAPARIN SODIUM
  5. OMEPRAZOLE. [Concomitant]
     Active Substance: OMEPRAZOLE
  6. TRAZODONE HYDROCHLORIDE. [Concomitant]
     Active Substance: TRAZODONE HYDROCHLORIDE
  7. ZETIA [Concomitant]
     Active Substance: EZETIMIBE
  8. NORTRIPTYLINE HYDROCHLORIDE. [Concomitant]
     Active Substance: NORTRIPTYLINE HYDROCHLORIDE
  9. BACLOFEN. [Concomitant]
     Active Substance: BACLOFEN
  10. XYZAL [Concomitant]
     Active Substance: LEVOCETIRIZINE DIHYDROCHLORIDE
  11. ALBUTEROL SULFATE. [Concomitant]
     Active Substance: ALBUTEROL SULFATE
  12. NYSTATIN. [Concomitant]
     Active Substance: NYSTATIN
  13. DULOXETINE HYDROCHLORIDE. [Concomitant]
     Active Substance: DULOXETINE HYDROCHLORIDE
  14. BROVANA [Concomitant]
     Active Substance: ARFORMOTEROL TARTRATE
  15. LORAZEPAM. [Concomitant]
     Active Substance: LORAZEPAM
  16. MIDODRINE HYDROCHLORIDE. [Concomitant]
     Active Substance: MIDODRINE HYDROCHLORIDE
  17. CLONIDINE HYDROCHLORIDE. [Concomitant]
     Active Substance: CLONIDINE HYDROCHLORIDE
  18. ABILIFY [Concomitant]
     Active Substance: ARIPIPRAZOLE
  19. ERGOCALCIFEROL. [Concomitant]
     Active Substance: ERGOCALCIFEROL
  20. AZTREONAM LYSINE [Suspect]
     Active Substance: AZTREONAM LYSINE
     Indication: BRONCHIECTASIS
  21. ZOFRAN [Concomitant]
     Active Substance: ONDANSETRON HYDROCHLORIDE
  22. AZTREONAM LYSINE [Suspect]
     Active Substance: AZTREONAM LYSINE
     Indication: CYSTIC FIBROSIS
     Dosage: 75 MG, TID, 28 DAYS ON AND 28 DAYS OFF
     Route: 055
     Dates: start: 20190417
  23. DONEPEZIL HYDROCHLORIDE. [Concomitant]
     Active Substance: DONEPEZIL HYDROCHLORIDE
  24. IRON;VITAMINS NOS [Concomitant]
  25. FLUCONAZOLE. [Concomitant]
     Active Substance: FLUCONAZOLE
  26. VANCOMYCIN HYDROCHLORIDE. [Concomitant]
     Active Substance: VANCOMYCIN HYDROCHLORIDE
  27. HUMALOG [Concomitant]
     Active Substance: INSULIN LISPRO
  28. LEUCOVORIN CALCIUM. [Concomitant]
     Active Substance: LEUCOVORIN CALCIUM
  29. HYDROXYZINE HYDROCHLORIDE. [Concomitant]
     Active Substance: HYDROXYZINE HYDROCHLORIDE
  30. NOVOLIN R [Concomitant]
     Active Substance: INSULIN HUMAN
  31. AZELAIC ACID. [Concomitant]
     Active Substance: AZELAIC ACID

REACTIONS (6)
  - Limb injury [Unknown]
  - Concussion [Unknown]
  - Blood sodium decreased [Unknown]
  - Fall [Unknown]
  - Seizure [Unknown]
  - Pneumonia [Not Recovered/Not Resolved]
